FAERS Safety Report 9298201 (Version 2)
Quarter: 2013Q2

REPORT INFORMATION
  Report Type: Spontaneous
  Country: US (occurrence: None)
  Receive Date: 20130515
  Receipt Date: 20130531
  Transmission Date: 20140414
  Serious: Yes (Other)
  Sender: FDA-Public Use
  Company Number: JPI-P-031659

PATIENT
  Age: 29 Year
  Sex: Female

DRUGS (1)
  1. XYREM [Suspect]
     Indication: CATAPLEXY
     Dosage: 4.5 GM (2.25GM, 2 IN 1D), ORAL
     Route: 048
     Dates: start: 20120502

REACTIONS (4)
  - Decreased appetite [None]
  - Weight decreased [None]
  - Cholelithiasis [None]
  - Gallbladder operation [None]
